FAERS Safety Report 16647339 (Version 1)
Quarter: 2019Q3

REPORT INFORMATION
  Report Type: Other
  Country: FI (occurrence: FI)
  Receive Date: 20190730
  Receipt Date: 20190730
  Transmission Date: 20191004
  Serious: Yes (Other)
  Sender: FDA-Public Use
  Company Number: FI-ASTELLAS-2019US030217

PATIENT
  Age: 81 Year
  Sex: Male

DRUGS (1)
  1. BETMIGA [Suspect]
     Active Substance: MIRABEGRON
     Indication: PRODUCT USED FOR UNKNOWN INDICATION
     Route: 048
     Dates: start: 20190611, end: 20190614

REACTIONS (2)
  - Hallucination [Recovered/Resolved]
  - Stupor [Recovered/Resolved]

NARRATIVE: CASE EVENT DATE: 20190614
